FAERS Safety Report 15165466 (Version 2)
Quarter: 2018Q3

REPORT INFORMATION
  Report Type: Report from Study
  Country: US (occurrence: US)
  Receive Date: 20180719
  Receipt Date: 20180926
  Transmission Date: 20181010
  Serious: Yes (Hospitalization, Other)
  Sender: FDA-Public Use
  Company Number: US-JNJFOC-20180721992

PATIENT
  Age: 75 Year
  Sex: Male

DRUGS (20)
  1. TOPROL XL [Concomitant]
     Active Substance: METOPROLOL SUCCINATE
  2. CETRIZINE [Concomitant]
     Active Substance: CETIRIZINE HYDROCHLORIDE
  3. BUPROPION HCL [Concomitant]
     Active Substance: BUPROPION HYDROCHLORIDE
  4. ONDANSETRON [Concomitant]
     Active Substance: ONDANSETRON
  5. BENADRYL [Concomitant]
     Active Substance: DIPHENHYDRAMINE HYDROCHLORIDE
  6. FERROUS SULFATE. [Concomitant]
     Active Substance: FERROUS SULFATE
  7. VITAMIN B12 [Concomitant]
     Active Substance: CYANOCOBALAMIN
  8. TOCOPHEROL [Concomitant]
     Active Substance: TOCOPHEROL
  9. VENLAFAXINE XR [Concomitant]
     Active Substance: VENLAFAXINE HYDROCHLORIDE
  10. IMBRUVICA [Suspect]
     Active Substance: IBRUTINIB
     Indication: WALDENSTROM^S MACROGLOBULINAEMIA
     Route: 048
     Dates: start: 20180603
  11. ATORVASTATIN CALCIUM. [Concomitant]
     Active Substance: ATORVASTATIN CALCIUM
  12. CALCITROL [Concomitant]
     Active Substance: CALCITRIOL
  13. FISH OIL [Concomitant]
     Active Substance: FISH OIL
  14. FUROSEMIDE. [Concomitant]
     Active Substance: FUROSEMIDE
  15. FLONASE [Concomitant]
     Active Substance: FLUTICASONE PROPIONATE
  16. PROCHLORPERAZINE. [Concomitant]
     Active Substance: PROCHLORPERAZINE
  17. LEVOTHYROXINE. [Concomitant]
     Active Substance: LEVOTHYROXINE
  18. TAMSULOSIN HCL [Concomitant]
     Active Substance: TAMSULOSIN HYDROCHLORIDE
  19. VITAMIN C [Concomitant]
     Active Substance: ASCORBIC ACID
  20. NITROSTAT [Concomitant]
     Active Substance: NITROGLYCERIN

REACTIONS (10)
  - Lower urinary tract symptoms [Unknown]
  - Back pain [Unknown]
  - Atrial fibrillation [Recovering/Resolving]
  - Cardiac failure [Unknown]
  - Pulmonary oedema [Unknown]
  - Pulmonary haemorrhage [Recovering/Resolving]
  - Iron deficiency anaemia [Unknown]
  - Neck pain [Unknown]
  - Chronic respiratory failure [Unknown]
  - Impaired fasting glucose [Unknown]

NARRATIVE: CASE EVENT DATE: 20180807
